FAERS Safety Report 9261657 (Version 9)
Quarter: 2014Q2

REPORT INFORMATION
  Report Type: Report from Study
  Country: JP (occurrence: JP)
  Receive Date: 20130429
  Receipt Date: 20140411
  Transmission Date: 20141212
  Serious: Yes (Hospitalization)
  Sender: FDA-Public Use
  Company Number: JP-PFIZER INC-2013124504

PATIENT
  Age: 79 Year
  Sex: Male
  Weight: 78.6 kg

DRUGS (12)
  1. AXITINIB [Suspect]
     Indication: RENAL CELL CARCINOMA
     Dosage: UNK
     Dates: start: 20130328, end: 20130413
  2. TELMISARTAN [Concomitant]
     Indication: HYPERTENSION
     Dosage: 80 MG, 1X/DAY
     Route: 048
     Dates: start: 2011, end: 20130407
  3. HYDROCHLOROTHIAZIDE [Concomitant]
     Indication: HYPERTENSION
     Dosage: 12.5 MG, 1X/DAY
     Route: 048
     Dates: start: 2011, end: 20130408
  4. CARVEDILOL [Concomitant]
     Indication: HYPERTENSION
     Dosage: 5 MG, 1X/DAY
     Route: 048
     Dates: start: 2011
  5. TAMSULOSIN HYDROCHLORIDE [Concomitant]
     Indication: BENIGN PROSTATIC HYPERPLASIA
     Dosage: 0.2 MG, 1X/DAY
     Route: 048
     Dates: start: 2011
  6. AMLODIPINE BESILATE [Concomitant]
     Indication: HYPERTENSION
     Dosage: 5 MG, 3X/DAY
     Route: 048
     Dates: start: 2013
  7. MOSAPRIDE CITRATE HYDRATE [Concomitant]
     Indication: GASTRITIS PROPHYLAXIS
     Dosage: 5 MG, 3X/DAY
     Route: 048
     Dates: start: 2011
  8. LACTIC ACID BACTERIA [Concomitant]
     Indication: CONSTIPATION
     Dosage: 1 G, 3X/DAY
     Route: 048
     Dates: start: 2011, end: 20130408
  9. MAGNESIUM OXIDE [Concomitant]
     Indication: CONSTIPATION
     Dosage: 0.4 G, 3X/DAY
     Route: 048
     Dates: start: 2011
  10. DONEPEZIL HYDROCHLORIDE [Concomitant]
     Indication: CEREBRAL INFARCTION
     Dosage: 5 MG, 1X/DAY
     Route: 048
     Dates: start: 2011
  11. CLONAZEPAM [Concomitant]
     Indication: PROPHYLAXIS
     Dosage: 0.5 MG, 1X/DAY
     Route: 048
     Dates: start: 2011
  12. SODIUM RABEPRAZOLE [Concomitant]
     Indication: GASTRITIS PROPHYLAXIS
     Dosage: 10 MG, 1X/DAY
     Route: 048
     Dates: start: 2011

REACTIONS (1)
  - Toxic skin eruption [Recovered/Resolved]
